FAERS Safety Report 5966829-3 (Version None)
Quarter: 2008Q4

REPORT INFORMATION
  Report Type: 
  Country: None (occurrence: None)
  Receive Date: 20081125
  Receipt Date: 20081118
  Transmission Date: 20090506
  Serious: Yes (Death, Hospitalization, Other)
  Sender: FDA-Public Use
  Company Number: US-ROXANE LABORATORIES, INC.-2008-RO-00243RO

PATIENT
  Age: 73 Year
  Sex: Male

DRUGS (5)
  1. DEXAMETHASONE 0.5MG TAB [Suspect]
     Indication: GLIOBLASTOMA MULTIFORME
     Dosage: 8MG
  2. FLUCONAZOLE [Suspect]
     Indication: MENINGITIS CRYPTOCOCCAL
     Route: 042
  3. AMPHOTERICIN B [Suspect]
     Indication: MENINGITIS CRYPTOCOCCAL
     Route: 042
  4. FLUCYTOSINE [Suspect]
     Indication: MENINGITIS CRYPTOCOCCAL
  5. TEMOZOLOMIDE [Suspect]
     Indication: GLIOBLASTOMA MULTIFORME

REACTIONS (4)
  - DEATH [None]
  - MENINGITIS CRYPTOCOCCAL [None]
  - RESPIRATORY DISTRESS [None]
  - SEPSIS [None]
